FAERS Safety Report 7568469-1 (Version None)
Quarter: 2011Q2

REPORT INFORMATION
  Report Type: 
  Country: None (occurrence: None)
  Receive Date: 20110623
  Receipt Date: 20110610
  Transmission Date: 20111010
  Serious: Yes (Other)
  Sender: FDA-Public Use
  Company Number: US-ELI_LILLY_AND_COMPANY-US201106004816

PATIENT
  Age: 61 Year
  Sex: Female

DRUGS (8)
  1. CYMBALTA [Suspect]
     Indication: FIBROMYALGIA
     Dosage: 60 MG, QD
     Dates: start: 20040101, end: 20110501
  2. CYMBALTA [Suspect]
     Dosage: 60 MG, QOD
     Dates: start: 20110501, end: 20110501
  3. ANTIHYPERTENSIVES [Concomitant]
  4. ZOCOR [Concomitant]
     Dosage: U40 MG, QD
  5. VICODIN [Concomitant]
     Dosage: UNK, BID
  6. CYMBALTA [Suspect]
     Dosage: 30 MG, QD
     Dates: start: 20110501, end: 20110501
  7. CYMBALTA [Suspect]
     Dosage: 30 MG, EVERY 2 DAYS
     Dates: start: 20110601
  8. CYMBALTA [Suspect]
     Dosage: 30 MG, QOD
     Dates: start: 20110501, end: 20110601

REACTIONS (21)
  - RETINAL DISORDER [None]
  - INSOMNIA [None]
  - TEARFULNESS [None]
  - VISUAL IMPAIRMENT [None]
  - NAUSEA [None]
  - GLAUCOMA [None]
  - NIGHTMARE [None]
  - DIZZINESS [None]
  - HEADACHE [None]
  - IRRITABILITY [None]
  - BALANCE DISORDER [None]
  - DRUG WITHDRAWAL SYNDROME [None]
  - FEELING ABNORMAL [None]
  - VOMITING [None]
  - DIARRHOEA [None]
  - ANXIETY [None]
  - WEIGHT DECREASED [None]
  - DRUG INEFFECTIVE [None]
  - FATIGUE [None]
  - HYPERHIDROSIS [None]
  - EAR DISORDER [None]
